FAERS Safety Report 9376645 (Version 3)
Quarter: 2013Q3

REPORT INFORMATION
  Report Type: Report from Study
  Country: US (occurrence: US)
  Receive Date: 20130701
  Receipt Date: 20130726
  Transmission Date: 20140515
  Serious: Yes (Hospitalization)
  Sender: FDA-Public Use
  Company Number: US-AMGEN-USACT2013044962

PATIENT
  Age: 45 Year
  Sex: Female
  Weight: 85.45 kg

DRUGS (18)
  1. PEGFILGRASTIM [Suspect]
     Indication: BONE PAIN
     Dosage: 6 MG, UNK
     Dates: start: 20130507
  2. DOXORUBICIN [Concomitant]
     Dosage: 60 MG/M2, UNK
     Dates: start: 20130506
  3. CYCLOPHOSPHAMIDE [Concomitant]
     Dosage: 600 MG/M2, UNK
     Dates: start: 20130506
  4. DECADRON [Concomitant]
     Dosage: 8 MG, UNK
     Route: 048
     Dates: start: 20130507, end: 20130523
  5. ATIVAN [Concomitant]
     Dosage: 1 MG, UNK
     Route: 048
     Dates: start: 20130430
  6. MIRALAX [Concomitant]
     Dosage: 17 G, UNK
     Route: 048
     Dates: start: 20130603
  7. SENOKOT-S [Concomitant]
     Dosage: UNK
     Route: 048
     Dates: start: 20130603
  8. LIDOCAINE [Concomitant]
     Dosage: UNK
     Route: 061
     Dates: start: 20130518
  9. PHENERGAN [Concomitant]
     Dosage: 25 MG, UNK
     Route: 048
     Dates: start: 20130508
  10. ZOFRAN [Concomitant]
     Dosage: 8 MG, UNK
     Route: 048
     Dates: start: 20130508
  11. TRAMADOL [Concomitant]
     Dosage: 50 MG, UNK
     Route: 048
     Dates: start: 20130520, end: 20130702
  12. CIPRO [Concomitant]
     Dosage: 1000 MG, UNK
     Route: 048
     Dates: start: 20130603, end: 20130617
  13. HYDROCODONE BITARTRATE AND ACETAMINOPHEN [Concomitant]
     Dosage: 7.5 MG, UNK
     Route: 048
     Dates: start: 20130603
  14. PERCOCET [Concomitant]
     Dosage: UNK
     Route: 048
     Dates: start: 20130607
  15. MACROBID [Concomitant]
     Dosage: 200 MG, UNK
     Route: 048
     Dates: start: 20130607, end: 20130614
  16. ALBUTEROL [Concomitant]
     Dosage: 9 ML, UNK
     Route: 055
     Dates: start: 20130622
  17. STOMATOLOGICALS, MOUTH PREPARATIONS [Concomitant]
     Dosage: 20 ML, UNK
     Route: 048
     Dates: start: 20130603, end: 20130617
  18. VANCOMYCIN [Concomitant]
     Dosage: 2 G, UNK
     Route: 042
     Dates: start: 20130629, end: 20130701

REACTIONS (2)
  - Pain [Recovered/Resolved]
  - Dehydration [Recovered/Resolved]
